FAERS Safety Report 7831666-1 (Version None)
Quarter: 2011Q4

REPORT INFORMATION
  Report Type: 
  Country: None (occurrence: None)
  Receive Date: 20111019
  Receipt Date: 20111011
  Transmission Date: 20120403
  Serious: Yes (Other)
  Sender: FDA-Public Use
  Company Number: AUR-APL-2011-05040

PATIENT
  Age: 26 Year
  Sex: Male

DRUGS (3)
  1. QUETIAPINE [Concomitant]
  2. SERTRALINE HYDROCHLORIDE [Concomitant]
  3. FLUOXETINE [Suspect]
     Indication: DEPRESSION
     Dosage: 20 MG (20 MG, 1 IN 1 D); 40 MG (40 MG, 1 IN 1 D); 60 MG (60 MG, 1 IN 1 D); 80 MG (80 MG, 1 IN 1 D)

REACTIONS (7)
  - DYSTHYMIC DISORDER [None]
  - HYPOACUSIS [None]
  - PSYCHOTIC DISORDER [None]
  - HALLUCINATION, AUDITORY [None]
  - AGITATION [None]
  - ILLUSION [None]
  - AGGRESSION [None]
